FAERS Safety Report 20551766 (Version 2)
Quarter: 2022Q1

REPORT INFORMATION
  Report Type: Spontaneous
  Country: US (occurrence: US)
  Receive Date: 20220304
  Receipt Date: 20220312
  Transmission Date: 20220424
  Serious: No
  Sender: FDA-Public Use
  Company Number: US-NOVARTISTESTPH-NVSC2022US051525

PATIENT
  Sex: Female

DRUGS (2)
  1. BRIMONIDINE TARTRATE [Suspect]
     Active Substance: BRIMONIDINE TARTRATE
     Indication: Product used for unknown indication
     Dosage: 1 DOSAGE FORM (15ML LDP US)
     Route: 065
  2. BRINZOLAMIDE [Concomitant]
     Active Substance: BRINZOLAMIDE
     Indication: Product used for unknown indication
     Dosage: UNK
     Route: 065

REACTIONS (7)
  - Dysphagia [Unknown]
  - Insomnia [Unknown]
  - Visual impairment [Unknown]
  - Hypertension [Unknown]
  - Dry mouth [Unknown]
  - Somnolence [Unknown]
  - Hypersensitivity [Unknown]
